FAERS Safety Report 24540572 (Version 1)
Quarter: 2024Q4

REPORT INFORMATION
  Report Type: Spontaneous
  Country: FR (occurrence: FR)
  Receive Date: 20241023
  Receipt Date: 20241023
  Transmission Date: 20250114
  Serious: Yes (Hospitalization)
  Sender: SANDOZ
  Company Number: None

PATIENT
  Age: 95 Year
  Sex: Male
  Weight: 78 kg

DRUGS (7)
  1. FLUINDIONE [Suspect]
     Active Substance: FLUINDIONE
     Indication: Atrial fibrillation
     Dosage: 10 MG, QD
     Route: 048
     Dates: start: 20190109, end: 20190120
  2. BISOPROLOL [Concomitant]
     Active Substance: BISOPROLOL\BISOPROLOL FUMARATE
     Indication: Hypertension
     Dosage: 2.5 MG, QD
     Route: 048
     Dates: start: 20190104, end: 20190125
  3. FERROUS FUMARATE [Concomitant]
     Active Substance: FERROUS FUMARATE
     Indication: Iron deficiency
     Dosage: 198 MG, QD
     Route: 048
     Dates: start: 20181231, end: 20190125
  4. MOVICOL [Concomitant]
     Active Substance: POLYETHYLENE GLYCOL 3350\POTASSIUM CHLORIDE\SODIUM BICARBONATE\SODIUM CHLORIDE
     Indication: Constipation
     Dosage: UNK, 2 *ZZ_?G/L, 1 TOTAL
     Route: 048
     Dates: start: 20190118, end: 20190125
  5. OXAZEPAM [Concomitant]
     Active Substance: OXAZEPAM
     Indication: Anxiety disorder
     Dosage: 10 MG, QD
     Route: 048
     Dates: start: 20190120, end: 20190121
  6. ALFUZOSIN [Concomitant]
     Active Substance: ALFUZOSIN
     Indication: Benign prostatic hyperplasia
     Dosage: 7.5 MG, QD
     Route: 048
     Dates: start: 20190106, end: 20190125
  7. ACETAMINOPHEN [Interacting]
     Active Substance: ACETAMINOPHEN
     Indication: Pain
     Dosage: 3000 MG, QD
     Route: 048
     Dates: start: 20190108, end: 20190125

REACTIONS (2)
  - International normalised ratio increased [Recovered/Resolved]
  - Rectal haemorrhage [Recovered/Resolved]

NARRATIVE: CASE EVENT DATE: 20190121
